FAERS Safety Report 4286157-4 (Version None)
Quarter: 2004Q1

REPORT INFORMATION
  Report Type: 
  Country: None (occurrence: None)
  Receive Date: 20040205
  Receipt Date: 20040126
  Transmission Date: 20041129
  Serious: Yes (Life-Threatening)
  Sender: FDA-Public Use
  Company Number: PL-BRISTOL-MYERS SQUIBB COMPANY-12486650

PATIENT
  Age: 42 Year
  Sex: Male

DRUGS (15)
  1. CEFEPIME HCL [Suspect]
  2. AMIKACIN [Suspect]
  3. FUROSEMIDE [Suspect]
  4. RANITIDINE [Suspect]
  5. OMEPRAZOLE [Suspect]
  6. PROPRANOLOL [Suspect]
  7. SPIRONOLACTONE [Suspect]
  8. ALBUMINAR-20 [Suspect]
     Dosage: 20 %
     Route: 042
  9. IMMUNE GLOBULIN INTRAVENOUS (HUMAN) [Suspect]
  10. VANCOMYCIN [Suspect]
  11. IMIPENEM [Suspect]
  12. FLUCONAZOLE [Suspect]
  13. PHYTONADIONE [Suspect]
  14. ORNITINA [Suspect]
  15. ETAMSYLATE [Suspect]

REACTIONS (3)
  - MELAENA [None]
  - POST PROCEDURAL COMPLICATION [None]
  - VARICES OESOPHAGEAL [None]
